FAERS Safety Report 17813722 (Version 1)
Quarter: 2020Q2

REPORT INFORMATION
  Report Type: Spontaneous
  Country: US (occurrence: US)
  Receive Date: 20200521
  Receipt Date: 20200521
  Transmission Date: 20200714
  Serious: Yes (Hospitalization, Other)
  Sender: FDA-Public Use
  Company Number: NVSC2020US128551

PATIENT
  Age: 5 Month
  Sex: Male

DRUGS (3)
  1. TRAMETINIB [Suspect]
     Active Substance: TRAMETINIB
     Indication: PRODUCT USED FOR UNKNOWN INDICATION
     Dosage: 0.012 MG/KG, QD (ON MEDICATION FOR TWO WEEKS)
     Route: 048
  2. ESMOLOL [Concomitant]
     Active Substance: ESMOLOL HYDROCHLORIDE
     Indication: PRODUCT USED FOR UNKNOWN INDICATION
     Dosage: UNK
     Route: 042
  3. PHENYLEPHRINE [Concomitant]
     Active Substance: PHENYLEPHRINE HYDROCHLORIDE
     Indication: PRODUCT USED FOR UNKNOWN INDICATION
     Dosage: UNK
     Route: 065

REACTIONS (14)
  - Nosocomial infection [Unknown]
  - Hypertrophic cardiomyopathy [Unknown]
  - Ill-defined disorder [Unknown]
  - Arrhythmia [Unknown]
  - Cardiac arrest [Unknown]
  - Dysphagia [Unknown]
  - Liver function test increased [Unknown]
  - Mitral valve incompetence [Unknown]
  - Lymphatic disorder [Unknown]
  - Product use issue [Unknown]
  - Necrotising enterocolitis neonatal [Unknown]
  - Left ventricle outflow tract obstruction [Recovering/Resolving]
  - Sepsis [Unknown]
  - Left ventricular hypertrophy [Unknown]
